FAERS Safety Report 6935736-1 (Version None)
Quarter: 2010Q3

REPORT INFORMATION
  Report Type: 
  Country: None (occurrence: None)
  Receive Date: 20100823
  Receipt Date: 20100809
  Transmission Date: 20110219
  Serious: Yes (Hospitalization, Other)
  Sender: FDA-Public Use
  Company Number: BE-CELGENEUS-013-21880-10040106

PATIENT
  Sex: Female
  Weight: 63.2 kg

DRUGS (5)
  1. REVLIMID [Suspect]
     Indication: T-CELL LYMPHOMA
     Route: 048
     Dates: start: 20100319, end: 20100325
  2. EFFEXOR [Concomitant]
     Indication: ANTIDEPRESSANT THERAPY
     Route: 065
     Dates: start: 20100216
  3. ZALDIAR [Concomitant]
     Indication: PAIN
     Route: 065
     Dates: start: 20100319
  4. ZOLPIDEM [Concomitant]
     Indication: INSOMNIA
     Route: 065
     Dates: start: 20090615
  5. STILNOCT [Concomitant]
     Indication: PRODUCT USED FOR UNKNOWN INDICATION
     Route: 065

REACTIONS (2)
  - ACUTE FEBRILE NEUTROPHILIC DERMATOSIS [None]
  - DISEASE PROGRESSION [None]
